FAERS Safety Report 18975557 (Version 1)
Quarter: 2021Q1

REPORT INFORMATION
  Report Type: Spontaneous
  Country: CA (occurrence: CA)
  Receive Date: 20210305
  Receipt Date: 20210305
  Transmission Date: 20210420
  Serious: Yes (Other)
  Sender: FDA-Public Use
  Company Number: CA-ORGANON-1903CAN009662

PATIENT
  Age: 55 Year
  Sex: Female

DRUGS (2)
  1. ZOCOR [Suspect]
     Active Substance: SIMVASTATIN
     Indication: HYPERCHOLESTEROLAEMIA
     Dosage: 10 MILLIGRAM, 1 EVERY 1 DAY(S)
     Route: 048
     Dates: start: 201704
  2. CRESTOR [Suspect]
     Active Substance: ROSUVASTATIN CALCIUM
     Indication: HYPERCHOLESTEROLAEMIA
     Dosage: 10 MILLIGRAM, 1 EVERY 1 DAY (S)
     Route: 048
     Dates: start: 201604, end: 201611

REACTIONS (4)
  - Skin lesion [Not Recovered/Not Resolved]
  - Therapeutic product cross-reactivity [Not Recovered/Not Resolved]
  - Fixed eruption [Unknown]
  - Drug eruption [Not Recovered/Not Resolved]

NARRATIVE: CASE EVENT DATE: 201604
